FAERS Safety Report 18341702 (Version 2)
Quarter: 2020Q4

REPORT INFORMATION
  Report Type: Report from Study
  Country: JP (occurrence: JP)
  Receive Date: 20201005
  Receipt Date: 20201211
  Transmission Date: 20210113
  Serious: Yes (Other)
  Sender: FDA-Public Use
  Company Number: JP-CELLTRION INC.-2020JP024602

PATIENT

DRUGS (5)
  1. MESALAZINE [Concomitant]
     Active Substance: MESALAMINE
     Dosage: 3000 MG/DAY
     Route: 048
  2. MIZORIBINE [Concomitant]
     Active Substance: MIZORIBINE
     Dosage: 150 MG/DAY
     Route: 048
  3. CT-P13 [Suspect]
     Active Substance: INFLIXIMAB-DYYB
     Dosage: 670 MG
     Route: 041
     Dates: start: 20190924, end: 20190924
  4. CT-P13 [Suspect]
     Active Substance: INFLIXIMAB-DYYB
     Indication: CROHN^S DISEASE
     Dosage: 690 MG
     Route: 041
     Dates: start: 20181016, end: 20181016
  5. CT-P13 [Suspect]
     Active Substance: INFLIXIMAB-DYYB
     Dosage: 660 MG
     Route: 041
     Dates: start: 20201006, end: 20201006

REACTIONS (11)
  - Herpes zoster [Recovered/Resolved]
  - Overdose [Unknown]
  - Insomnia [Unknown]
  - Hypokalaemia [Unknown]
  - Seasonal allergy [Unknown]
  - Nasopharyngitis [Recovered/Resolved]
  - Gastroenteritis [Recovered/Resolved]
  - Gastrooesophageal reflux disease [Unknown]
  - Migraine [Unknown]
  - Off label use [Unknown]
  - Rash [Unknown]

NARRATIVE: CASE EVENT DATE: 20181203
